FAERS Safety Report 4589309-9 (Version None)
Quarter: 2005Q1

REPORT INFORMATION
  Report Type: 
  Country: None (occurrence: None)
  Receive Date: 20050216
  Receipt Date: 20050203
  Transmission Date: 20050727
  Serious: Yes (Hospitalization, Other)
  Sender: FDA-Public Use
  Company Number: 2004-05235

PATIENT
  Age: 54 Year
  Sex: Female
  Weight: 89.8 kg

DRUGS (7)
  1. METRONIDAZOLE [Suspect]
     Indication: DIVERTICULITIS
     Dosage: 1 TABLET, TID, ORAL
     Route: 048
     Dates: start: 20040801, end: 20040801
  2. METRONIDAZOLE [Suspect]
     Indication: DIVERTICULITIS
     Dosage: 1 TABLET, TID, ORAL
     Route: 048
     Dates: start: 20040901, end: 20041001
  3. METRONIDAZOLE [Suspect]
     Indication: DIVERTICULITIS
     Dosage: 1 TABLET, TID, ORAL
     Route: 048
     Dates: start: 20041001
  4. PROZAC [Concomitant]
  5. DIPENTUM [Concomitant]
  6. LEVAQUIN [Concomitant]
  7. MULTIVITAMINS (ERGOCALCIFEROL, THIAMINE HYDROCHLORIDE, RETINOL, RIBOFL [Concomitant]

REACTIONS (2)
  - BACK PAIN [None]
  - NEUROPATHY PERIPHERAL [None]
